FAERS Safety Report 8871781 (Version 5)
Quarter: 2014Q2

REPORT INFORMATION
  Report Type: Report from Study
  Country: JP (occurrence: JP)
  Receive Date: 20121030
  Receipt Date: 20140513
  Transmission Date: 20141212
  Serious: Yes (Hospitalization, Other)
  Sender: FDA-Public Use
  Company Number: JP-VERTEX PHARMACEUTICAL INC.-2012-023559

PATIENT
  Age: 61 Year
  Sex: Male

DRUGS (76)
  1. VX-950 (TELAPREVIR) [Suspect]
     Indication: CHRONIC HEPATITIS C
     Dosage: 2250 MG, QD
     Route: 048
     Dates: start: 20120702, end: 20120819
  2. VX-950 (TELAPREVIR) [Suspect]
     Dosage: 1500 MG, QD
     Route: 048
     Dates: start: 20120820, end: 20120902
  3. VX-950 (TELAPREVIR) [Suspect]
     Dosage: 750 MG, QD
     Route: 048
     Dates: start: 20120903, end: 20120923
  4. PEGINTERFERON ALFA-2B [Suspect]
     Indication: CHRONIC HEPATITIS C
     Dosage: 1.5 ?G/KG,QW
     Route: 058
     Dates: start: 20120702, end: 20121015
  5. REBETOL [Suspect]
     Indication: CHRONIC HEPATITIS C
     Dosage: 800 MG, QD
     Route: 048
     Dates: start: 20120702, end: 20120716
  6. REBETOL [Suspect]
     Dosage: 600 MG, QD
     Route: 048
     Dates: start: 20120717, end: 20120805
  7. REBETOL [Suspect]
     Dosage: 400 MG, QD
     Route: 048
     Dates: start: 20120806, end: 20120812
  8. REBETOL [Suspect]
     Dosage: 300 MG, QD
     Route: 048
     Dates: start: 20120813, end: 20120819
  9. REBETOL [Suspect]
     Dosage: 200 MG, QD
     Route: 048
     Dates: start: 20120820, end: 20121021
  10. NEXIUM [Concomitant]
     Dosage: 20 MG, QD
     Route: 048
     Dates: start: 20120702, end: 20121021
  11. NEXIUM [Concomitant]
     Dosage: 20 MG, QD
     Route: 048
     Dates: start: 20121102, end: 20121115
  12. MUCOSTA [Concomitant]
     Dosage: 300 MG, UNK
     Route: 048
     Dates: start: 20120702, end: 20121021
  13. VEGAMOX [Concomitant]
     Dosage: UNK
     Route: 031
     Dates: start: 20120725, end: 20120805
  14. POTACOL R (LACTATED RINGER^S SOLUTION WITH MALTOSE) [Concomitant]
     Dosage: 250 ML, QD
     Route: 051
     Dates: start: 20121020, end: 20121020
  15. POTACOL R (LACTATED RINGER^S SOLUTION WITH MALTOSE) [Concomitant]
     Dosage: 3000 ML, QD
     Route: 051
     Dates: start: 20121021, end: 20121021
  16. POTACOL R (LACTATED RINGER^S SOLUTION WITH MALTOSE) [Concomitant]
     Dosage: 4000 ML, QD
     Route: 051
     Dates: start: 20121022, end: 20121023
  17. POTACOL R (LACTATED RINGER^S SOLUTION WITH MALTOSE) [Concomitant]
     Dosage: 2000 ML, QD
     Route: 051
     Dates: start: 20121024, end: 20121024
  18. POTACOL R (LACTATED RINGER^S SOLUTION WITH MALTOSE) [Concomitant]
     Dosage: 1500 ML, QD
     Route: 051
     Dates: start: 20121025, end: 20121025
  19. CAPISTEN [Concomitant]
     Dosage: 2.5 ML, QD
     Route: 030
     Dates: start: 20121020, end: 20121020
  20. PRIMPERAN [Concomitant]
     Dosage: 2 ML, QD
     Route: 051
     Dates: start: 20121020, end: 20121021
  21. NAFAMOSTAT MESILATE [Concomitant]
     Dosage: 2 DF, QD
     Route: 051
     Dates: start: 20121020, end: 20121020
  22. NAFAMOSTAT MESILATE [Concomitant]
     Dosage: 4 DF, QD
     Route: 051
     Dates: start: 20121021, end: 20121022
  23. NAFAMOSTAT MESILATE [Concomitant]
     Dosage: 2 DF, QD
     Route: 051
     Dates: start: 20121030, end: 20121105
  24. ISOTONIC SODIUM CHLORIDE SOLUTION [Concomitant]
     Dosage: 40 ML, QD
     Route: 051
     Dates: start: 20121020, end: 20121020
  25. ISOTONIC SODIUM CHLORIDE SOLUTION [Concomitant]
     Dosage: 80 ML, QD
     Route: 051
     Dates: start: 20121021, end: 20121028
  26. ISOTONIC SODIUM CHLORIDE SOLUTION [Concomitant]
     Dosage: 100 ML, QD
     Route: 051
     Dates: start: 20121029, end: 20121029
  27. ISOTONIC SODIUM CHLORIDE SOLUTION [Concomitant]
     Dosage: 80 ML, QD
     Route: 051
     Dates: start: 20121030, end: 20121101
  28. 5% GLUCOSE OTSUKA [Concomitant]
     Dosage: 250 ML, QD
     Route: 051
     Dates: start: 20121020, end: 20121020
  29. 5% GLUCOSE OTSUKA [Concomitant]
     Dosage: 1000 ML, QD
     Route: 051
     Dates: start: 20121021, end: 20121022
  30. 5% GLUCOSE OTSUKA [Concomitant]
     Dosage: 1500 ML, QD
     Route: 051
     Dates: start: 20121023, end: 20121023
  31. 5% GLUCOSE OTSUKA [Concomitant]
     Dosage: 500 UNK, UNK
     Route: 051
     Dates: start: 20121024, end: 20121024
  32. 5% GLUCOSE OTSUKA [Concomitant]
     Dosage: 1500 UNK, UNK
     Route: 051
     Dates: start: 20121025, end: 20121025
  33. 5% GLUCOSE OTSUKA [Concomitant]
     Dosage: 500 UNK, UNK
     Route: 051
     Dates: start: 20121026, end: 20121026
  34. 5% GLUCOSE OTSUKA [Concomitant]
     Dosage: 1000 UNK, UNK
     Route: 051
     Dates: start: 20121027, end: 20121029
  35. 5% GLUCOSE OTSUKA [Concomitant]
     Dosage: 500 ML, UNK
     Route: 051
     Dates: start: 20121102, end: 20121105
  36. OMEPRAL [Concomitant]
     Dosage: 20 MG, QD
     Route: 051
     Dates: start: 20121020, end: 20121020
  37. OMEPRAL [Concomitant]
     Dosage: 40 MG, QD
     Route: 048
     Dates: start: 20121021, end: 20121101
  38. TIENAM [Concomitant]
     Dosage: 0.5 G, QD
     Route: 042
     Dates: start: 20121020, end: 20121020
  39. TIENAM [Concomitant]
     Dosage: 1 G, QD
     Route: 042
     Dates: start: 20121021, end: 20121029
  40. INTEBAN [Concomitant]
     Dosage: 50 MG, QD
     Route: 054
     Dates: start: 20121021, end: 20121024
  41. INTEBAN [Concomitant]
     Dosage: 25 MG, QD
     Route: 054
     Dates: start: 20121025, end: 20121025
  42. INTEBAN [Concomitant]
     Dosage: 50 MG, QD
     Route: 054
     Dates: start: 20121026, end: 20121026
  43. INTEBAN [Concomitant]
     Dosage: 25 MG, QD
     Route: 054
     Dates: start: 20121027, end: 20121028
  44. INTEBAN [Concomitant]
     Dosage: 25 MG, QD
     Route: 054
     Dates: start: 20121030, end: 20121030
  45. PENTAGIN [Concomitant]
     Dosage: 1 ML, QD
     Route: 051
     Dates: start: 20121021, end: 20121025
  46. PENTAGIN [Concomitant]
     Dosage: 1 ML, QD
     Route: 051
     Dates: start: 20121027, end: 20121029
  47. RECOMODULIN [Concomitant]
     Dosage: 2 DF, QD
     Route: 042
     Dates: start: 20121021, end: 20121029
  48. PHYSIOLOGICAL SALINE FOR INTRAVENOUS [Concomitant]
     Dosage: 100 ML, QD
     Route: 042
     Dates: start: 20121021, end: 20121029
  49. HEPAFLUSH [Concomitant]
     Dosage: 1 DF, QD
     Route: 051
     Dates: start: 20121022, end: 20121023
  50. HEPAFLUSH [Concomitant]
     Dosage: 1 DF, QD
     Route: 051
     Dates: start: 20121026, end: 20121026
  51. HEPAFLUSH [Concomitant]
     Dosage: 1 DF, QD
     Route: 051
     Dates: start: 20121028, end: 20121029
  52. HEPAFLUSH [Concomitant]
     Dosage: 2 DF, QD
     Route: 051
     Dates: start: 20121030, end: 20121101
  53. HEPAFLUSH [Concomitant]
     Dosage: 1 DF, QD
     Route: 051
     Dates: start: 20121102, end: 20121102
  54. HEPAFLUSH [Concomitant]
     Dosage: 2 DF, QD
     Route: 051
     Dates: start: 20121103, end: 20121105
  55. HEPAFLUSH [Concomitant]
     Dosage: 1 DF, QD
     Route: 051
     Dates: start: 20121106, end: 20121106
  56. NAFAMOSTAT [Concomitant]
     Dosage: 6 DF, QD
     Route: 051
     Dates: start: 20121023, end: 20121023
  57. NAFAMOSTAT [Concomitant]
     Dosage: 2 DF, QD
     Route: 051
     Dates: start: 20121024, end: 20121024
  58. NAFAMOSTAT [Concomitant]
     Dosage: 6 DF, QD
     Route: 051
     Dates: start: 20121025, end: 20121025
  59. NAFAMOSTAT [Concomitant]
     Dosage: 2 DF, QD
     Route: 051
     Dates: start: 20121026, end: 20121026
  60. NAFAMOSTAT [Concomitant]
     Dosage: 4 DF, QD
     Route: 051
     Dates: start: 20121027, end: 20121029
  61. ALBUMIN [Concomitant]
     Dosage: 1 DF, QD
     Route: 051
     Dates: start: 20121023, end: 20121025
  62. ALBUMIN [Concomitant]
     Dosage: 1 DF, QD
     Route: 051
     Dates: start: 20121029, end: 20121031
  63. SELTOUCH [Concomitant]
     Dosage: UNK
     Route: 061
     Dates: start: 20121024, end: 20121024
  64. SELTOUCH [Concomitant]
     Dosage: UNK
     Route: 061
     Dates: start: 20121101, end: 20121101
  65. VITAJECT [Concomitant]
     Dosage: 10 ML, QD
     Route: 051
     Dates: start: 20121025, end: 20121031
  66. SEISHOKU (ISOTONIC SODIUM CHLORIDE SOLUTION) [Concomitant]
     Dosage: 500 ML, QD
     Route: 051
     Dates: start: 20121026, end: 20121105
  67. ELEMENMIC [Concomitant]
     Dosage: 2 ML, QD
     Route: 051
     Dates: start: 20121026, end: 20121105
  68. FULCALIQ 1 [Concomitant]
     Dosage: 1 DF, QD
     Route: 051
     Dates: start: 20121026, end: 20121026
  69. FULCALIQ 2 [Concomitant]
     Dosage: 1 DF, QD
     Route: 051
     Dates: start: 20121027, end: 20121102
  70. UNASYN S [Concomitant]
     Dosage: 3 G, QD
     Route: 042
     Dates: start: 20121030, end: 20121105
  71. SODIUM CHLORIDE + DEXTROSE [Concomitant]
     Dosage: 2 DF, QD
     Route: 051
     Dates: start: 20121030, end: 20121105
  72. FULCALIQ 3 [Concomitant]
     Dosage: 1 DF, QD
     Route: 051
     Dates: start: 20121103, end: 20121105
  73. SOLITAX-H [Concomitant]
     Dosage: 1000 ML, QD
     Route: 051
     Dates: start: 20121106, end: 20121106
  74. HUSCODE [Concomitant]
     Dosage: 20 ML, QD
     Route: 048
     Dates: start: 20121106, end: 20121106
  75. HUSCODE [Concomitant]
     Dosage: 20 ML, QD
     Route: 048
     Dates: start: 20121108, end: 20121108
  76. 50% GLUCOSE OTSUKA GLUCOSE [Concomitant]
     Dosage: 1 DF, UNK
     Route: 051
     Dates: start: 20121025, end: 20121102

REACTIONS (2)
  - Pancreatitis acute [Recovered/Resolved]
  - Haemoglobin decreased [Recovering/Resolving]
